FAERS Safety Report 24194629 (Version 1)
Quarter: 2024Q3

REPORT INFORMATION
  Report Type: Report from Study
  Country: US (occurrence: US)
  Receive Date: 20240809
  Receipt Date: 20240809
  Transmission Date: 20241017
  Serious: Yes (Other)
  Sender: JOHNSON AND JOHNSON
  Company Number: US-JNJFOC-20240677750

PATIENT
  Age: 71 Year
  Sex: Female

DRUGS (4)
  1. MACITENTAN [Suspect]
     Active Substance: MACITENTAN
     Indication: Pulmonary arterial hypertension
     Route: 048
     Dates: start: 202102
  2. HYDROXYCHLOROQUINE [Concomitant]
     Active Substance: HYDROXYCHLOROQUINE
     Dates: start: 20240625
  3. SOTATERCEPT [Concomitant]
     Active Substance: SOTATERCEPT
  4. OXYGEN [Concomitant]
     Active Substance: OXYGEN

REACTIONS (8)
  - Scleroderma [Unknown]
  - Upper-airway cough syndrome [Unknown]
  - Myalgia [Unknown]
  - Feeling abnormal [Unknown]
  - Memory impairment [Unknown]
  - Epistaxis [Unknown]
  - Neck pain [Unknown]
  - Lip haemorrhage [Unknown]
